FAERS Safety Report 14449983 (Version 2)
Quarter: 2018Q2

REPORT INFORMATION
  Report Type: Spontaneous
  Country: CH (occurrence: CH)
  Receive Date: 20180129
  Receipt Date: 20180605
  Transmission Date: 20180711
  Serious: Yes (Death, Hospitalization)
  Sender: FDA-Public Use
  Company Number: CH-ROCHE-2059694

PATIENT
  Age: 75 Year
  Sex: Male
  Weight: 60 kg

DRUGS (9)
  1. TORASEMID [Concomitant]
     Active Substance: TORSEMIDE
     Route: 048
  2. ASPIRIN CARDIO [Concomitant]
     Active Substance: ASPIRIN
     Route: 048
  3. ATORVASTATIN [Concomitant]
     Active Substance: ATORVASTATIN
     Route: 048
  4. VI-DE 3 [Concomitant]
     Active Substance: CHOLECALCIFEROL
  5. VALSARTAN. [Concomitant]
     Active Substance: VALSARTAN
     Indication: HYPERTENSION
  6. AMLODIPIN [Concomitant]
     Active Substance: AMLODIPINE BESYLATE
     Route: 048
  7. BEPANTHEN NASAL OINTMENT [Concomitant]
  8. PANTOPRAZOL [Concomitant]
     Active Substance: PANTOPRAZOLE SODIUM
     Route: 048
  9. ESBRIET [Suspect]
     Active Substance: PIRFENIDONE
     Indication: IDIOPATHIC PULMONARY FIBROSIS
     Route: 048
     Dates: start: 201601, end: 201703

REACTIONS (5)
  - Cholestasis [Recovering/Resolving]
  - Transaminases increased [Recovering/Resolving]
  - Decreased appetite [Not Recovered/Not Resolved]
  - Weight decreased [Not Recovered/Not Resolved]
  - Idiopathic pulmonary fibrosis [Fatal]

NARRATIVE: CASE EVENT DATE: 20160113
